FAERS Safety Report 17216076 (Version 1)
Quarter: 2019Q4

REPORT INFORMATION
  Report Type: Spontaneous
  Country: IT (occurrence: IT)
  Receive Date: 20191230
  Receipt Date: 20191230
  Transmission Date: 20200122
  Serious: Yes (Death, Hospitalization)
  Sender: FDA-Public Use
  Company Number: IT-EISAI MEDICAL RESEARCH-EC-2019-067880

PATIENT
  Age: 71 Year
  Sex: Female

DRUGS (1)
  1. ERIBULIN [Suspect]
     Active Substance: ERIBULIN
     Indication: PLEOMORPHIC LIPOSARCOMA
     Route: 041
     Dates: start: 201802, end: 201804

REACTIONS (3)
  - Thrombocytopenia [Unknown]
  - Pulmonary embolism [Unknown]
  - Sepsis [Unknown]

NARRATIVE: CASE EVENT DATE: 2018
